FAERS Safety Report 10974233 (Version 1)
Quarter: 2015Q2

REPORT INFORMATION
  Report Type: Spontaneous
  Country: US (occurrence: US)
  Receive Date: 20150401
  Receipt Date: 20150401
  Transmission Date: 20150821
  Serious: Yes (Hospitalization)
  Sender: FDA-Public Use
  Company Number: US-NOVOPROD-443762

PATIENT
  Age: 64 Year
  Sex: Male

DRUGS (2)
  1. GLUCOPHAGE [Concomitant]
     Active Substance: METFORMIN HYDROCHLORIDE
     Indication: TYPE 2 DIABETES MELLITUS
  2. VICTOZA [Suspect]
     Active Substance: LIRAGLUTIDE
     Indication: TYPE 2 DIABETES MELLITUS
     Dosage: UNKNOWN
     Dates: start: 201412, end: 201503

REACTIONS (2)
  - Metastases to lymph nodes [Not Recovered/Not Resolved]
  - Anaplastic thyroid cancer [Not Recovered/Not Resolved]

NARRATIVE: CASE EVENT DATE: 201502
